FAERS Safety Report 5219156-6 (Version None)
Quarter: 2007Q1

REPORT INFORMATION
  Report Type: 
  Country: None (occurrence: None)
  Receive Date: 20070125
  Receipt Date: 20070117
  Transmission Date: 20070707
  Serious: Yes (Hospitalization)
  Sender: FDA-Public Use
  Company Number: FR-GLAXOSMITHKLINE-B0443637A

PATIENT
  Age: 60 Year
  Sex: Female
  Weight: 68 kg

DRUGS (12)
  1. ZOFRAN [Suspect]
     Indication: VOMITING
     Dosage: 2INJ PER DAY
     Route: 042
     Dates: start: 20060822, end: 20060905
  2. ARACYTINE [Suspect]
     Indication: ACUTE MYELOID LEUKAEMIA
     Dosage: 350MG PER DAY
     Route: 042
     Dates: start: 20060822, end: 20060828
  3. CERUBIDINE [Suspect]
     Indication: ACUTE MYELOID LEUKAEMIA
     Dosage: 110MG PER DAY
     Route: 042
     Dates: start: 20060822, end: 20060824
  4. PRIMPERAN [Suspect]
     Indication: VOMITING
     Route: 042
     Dates: start: 20060818, end: 20060829
  5. CARDIOXANE [Suspect]
     Indication: ACUTE MYELOID LEUKAEMIA
     Dosage: 2G PER DAY
     Route: 042
     Dates: start: 20060822, end: 20060824
  6. VESANOID [Suspect]
     Indication: ACUTE MYELOID LEUKAEMIA
     Dosage: 80MG PER DAY
     Route: 048
     Dates: start: 20060818, end: 20060905
  7. ZANTAC [Concomitant]
     Route: 065
     Dates: start: 20060818, end: 20060830
  8. LEXOMIL [Concomitant]
     Route: 048
     Dates: start: 20060818, end: 20060905
  9. PERFALGAN [Concomitant]
     Route: 042
     Dates: start: 20060818, end: 20060820
  10. FUNGIZONE [Concomitant]
     Route: 048
     Dates: start: 20060822, end: 20060905
  11. HEPARIN [Concomitant]
     Route: 065
     Dates: end: 20060829
  12. SPASFON [Concomitant]
     Route: 065
     Dates: end: 20060905

REACTIONS (14)
  - COUGH [None]
  - DYSPNOEA [None]
  - GAMMA-GLUTAMYLTRANSFERASE INCREASED [None]
  - HAEMOPTYSIS [None]
  - INTERSTITIAL LUNG DISEASE [None]
  - OXYGEN SATURATION DECREASED [None]
  - PANCREATIC ENZYMES INCREASED [None]
  - PLEURAL EFFUSION [None]
  - PNEUMONIA [None]
  - RENAL FAILURE ACUTE [None]
  - RETINOIC ACID SYNDROME [None]
  - TACHYPNOEA [None]
  - TRANSAMINASES INCREASED [None]
  - WEIGHT INCREASED [None]
